FAERS Safety Report 8216021-7 (Version None)
Quarter: 2012Q1

REPORT INFORMATION
  Report Type: 
  Country: None (occurrence: None)
  Receive Date: 20120316
  Receipt Date: 20120309
  Transmission Date: 20120608
  Serious: Yes (Other)
  Sender: FDA-Public Use
  Company Number: GB-PFIZER INC-2012051850

PATIENT
  Age: 6 Year
  Sex: Female

DRUGS (1)
  1. CHLORAMPHENICOL [Suspect]
     Indication: CONJUNCTIVITIS
     Dosage: 1 DF, ONCE EVERY 2 HOURS
     Route: 047
     Dates: start: 20120212, end: 20120212

REACTIONS (5)
  - INCORRECT ROUTE OF DRUG ADMINISTRATION [None]
  - DRUG DISPENSING ERROR [None]
  - EYE IRRITATION [None]
  - EYE SWELLING [None]
  - EYE PAIN [None]
